FAERS Safety Report 5808283-8 (Version None)
Quarter: 2008Q3

REPORT INFORMATION
  Report Type: 
  Country: None (occurrence: None)
  Receive Date: 20080709
  Receipt Date: 20080627
  Transmission Date: 20090109
  Serious: Yes (Hospitalization)
  Sender: FDA-Public Use
  Company Number: 2008-01178

PATIENT
  Age: 75 Year
  Sex: Female
  Weight: 70 kg

DRUGS (13)
  1. VELCADE [Suspect]
     Indication: MULTIPLE MYELOMA
     Dosage: 1.3 MG/M2, IV BOLUS
     Route: 040
     Dates: start: 20080219, end: 20080229
  2. PREDNISONE TAB [Suspect]
     Indication: MULTIPLE MYELOMA
     Dosage: 105 MG, INTRAVENOUS
     Route: 042
     Dates: start: 20080219, end: 20080222
  3. MELPHALAN(MELPHALAN) VIAL [Suspect]
     Indication: MULTIPLE MYELOMA
     Dosage: 16 MG, INTRAVENOUS
     Route: 042
     Dates: start: 20080219, end: 20080222
  4. ALPRAZOLAM [Concomitant]
  5. ISMO [Concomitant]
  6. ATENOLOL [Concomitant]
  7. VERAPAMIL [Concomitant]
  8. PREMARIN [Concomitant]
  9. MAXZIDE [Concomitant]
  10. ASPIRIN [Concomitant]
  11. NEXIUM [Concomitant]
  12. LUNESTA [Concomitant]
  13. PROCHLORPERAZINE MALEATE [Concomitant]

REACTIONS (12)
  - ANAEMIA [None]
  - ASTHENIA [None]
  - BLOOD CHLORIDE DECREASED [None]
  - BONE MARROW FAILURE [None]
  - DIZZINESS [None]
  - ELECTROLYTE IMBALANCE [None]
  - FATIGUE [None]
  - HYPOKALAEMIA [None]
  - HYPONATRAEMIA [None]
  - HYPOPHOSPHATAEMIA [None]
  - LEUKOPENIA [None]
  - THROMBOCYTOPENIA [None]
